FAERS Safety Report 7985147-5 (Version None)
Quarter: 2011Q4

REPORT INFORMATION
  Report Type: 
  Country: None (occurrence: None)
  Receive Date: 20111213
  Receipt Date: 20111207
  Transmission Date: 20120403
  Serious: Yes (Hospitalization, Other)
  Sender: FDA-Public Use
  Company Number: 2009-199669-NL

PATIENT
  Age: 43 Year
  Sex: Female
  Weight: 99.7913 kg

DRUGS (4)
  1. NUVARING [Suspect]
     Indication: CONTRACEPTION
     Dosage: 1 DF
     Dates: start: 20050831, end: 20070701
  2. NUVARING [Suspect]
     Indication: MENSTRUAL CYCLE MANAGEMENT
     Dosage: 1 DF
     Dates: start: 20050831, end: 20070701
  3. LEXAPRO [Concomitant]
  4. PROPRANOLOL [Concomitant]

REACTIONS (28)
  - FATIGUE [None]
  - PALPITATIONS [None]
  - LOSS OF CONSCIOUSNESS [None]
  - COMPLEX REGIONAL PAIN SYNDROME [None]
  - DYSPNOEA EXERTIONAL [None]
  - TRIGGER FINGER [None]
  - THROMBOPHLEBITIS SUPERFICIAL [None]
  - VENTRICULAR EXTRASYSTOLES [None]
  - DEPRESSION [None]
  - SENSORY LOSS [None]
  - PULMONARY EMBOLISM [None]
  - HEART RATE DECREASED [None]
  - TUNNEL VISION [None]
  - DYSPHAGIA [None]
  - SYNCOPE [None]
  - ORTHOSTATIC HYPERTENSION [None]
  - URINARY RETENTION [None]
  - VISION BLURRED [None]
  - LIGAMENT SPRAIN [None]
  - DEEP VEIN THROMBOSIS [None]
  - PRESYNCOPE [None]
  - LOCAL SWELLING [None]
  - ECCHYMOSIS [None]
  - PULMONARY HYPERTENSION [None]
  - ATAXIA [None]
  - CHEST DISCOMFORT [None]
  - GALLBLADDER DISORDER [None]
  - STRESS FRACTURE [None]
